FAERS Safety Report 8924663 (Version 1)
Quarter: 2012Q4

REPORT INFORMATION
  Report Type: 
  Country: ES (occurrence: ES)
  Receive Date: 20121126
  Receipt Date: 20121126
  Transmission Date: 20130627
  Serious: Yes (Hospitalization)
  Sender: FDA-Public Use
  Company Number: ES-ROXANE LABORATORIES, INC.-2012-RO-02433RO

PATIENT
  Age: 31 Year
  Sex: Male

DRUGS (4)
  1. LEVETIRACETAM [Suspect]
     Indication: GRAND MAL CONVULSION
     Dosage: 2 g
     Route: 048
  2. DEXAMETHASONE [Suspect]
     Indication: GRAND MAL CONVULSION
     Dosage: 12 mg
  3. DEXAMETHASONE [Suspect]
     Dosage: 6 mg
  4. DEXAMETHASONE [Suspect]
     Dosage: 4 mg

REACTIONS (3)
  - Drug reaction with eosinophilia and systemic symptoms [Recovered/Resolved]
  - Pneumonitis [Recovered/Resolved]
  - Hepatitis [Recovered/Resolved]
